FAERS Safety Report 17399915 (Version 1)
Quarter: 2020Q1

REPORT INFORMATION
  Report Type: Spontaneous
  Country: GB (occurrence: GB)
  Receive Date: 20200211
  Receipt Date: 20200211
  Transmission Date: 20200409
  Serious: Yes (Other)
  Sender: FDA-Public Use
  Company Number: GB-TEVA-2020-GB-1184098

PATIENT
  Age: 62 Year
  Sex: Female
  Weight: 58 kg

DRUGS (3)
  1. SALBUTAMOL [Concomitant]
     Active Substance: ALBUTEROL
  2. SODIUM CROMOGLICATE [Suspect]
     Active Substance: CROMOLYN SODIUM
     Indication: CONJUNCTIVITIS ALLERGIC
     Dosage: 8 GTT
     Route: 047
     Dates: start: 20130101, end: 20200117
  3. BECLOMETASONE DIPROPIONATE [Concomitant]
     Active Substance: BECLOMETHASONE DIPROPIONATE
     Route: 045

REACTIONS (2)
  - Reaction to excipient [Unknown]
  - Dry eye [Recovered/Resolved with Sequelae]

NARRATIVE: CASE EVENT DATE: 20130101
